FAERS Safety Report 13005779 (Version 1)
Quarter: 2016Q4

REPORT INFORMATION
  Report Type: Spontaneous
  Country: PL (occurrence: PL)
  Receive Date: 20161207
  Receipt Date: 20161207
  Transmission Date: 20170207
  Serious: Yes (Other)
  Sender: FDA-Public Use
  Company Number: PL-PFIZER INC-2016560015

PATIENT
  Age: 72 Year
  Sex: Female

DRUGS (1)
  1. SUTENT [Suspect]
     Active Substance: SUNITINIB MALATE
     Indication: RENAL CANCER
     Dosage: 26 CYCLES IN TOTAL (156 WEEKS, I.E. 3 YEARS)

REACTIONS (5)
  - Hypertension [Unknown]
  - Neoplasm progression [Unknown]
  - Type 2 diabetes mellitus [Unknown]
  - Fatigue [Unknown]
  - Hypothyroidism [Unknown]

NARRATIVE: CASE EVENT DATE: 201502
